FAERS Safety Report 10008218 (Version 1)
Quarter: 2014Q1

REPORT INFORMATION
  Report Type: Spontaneous
  Country: US (occurrence: US)
  Receive Date: 20140313
  Receipt Date: 20140313
  Transmission Date: 20141002
  Serious: Yes (Other)
  Sender: FDA-Public Use
  Company Number: US-TEVA-468280USA

PATIENT
  Age: 37 Year
  Sex: Female
  Weight: 97.16 kg

DRUGS (2)
  1. PARAGARD 380A [Suspect]
     Indication: CONTRACEPTION
     Route: 015
     Dates: start: 20090903, end: 20140306
  2. VITAMINS [Concomitant]
     Indication: SUPPLEMENTATION THERAPY

REACTIONS (4)
  - Embedded device [Not Recovered/Not Resolved]
  - Dysmenorrhoea [Unknown]
  - Vaginal haemorrhage [Unknown]
  - Device breakage [Not Recovered/Not Resolved]
